FAERS Safety Report 25007982 (Version 1)
Quarter: 2025Q1

REPORT INFORMATION
  Report Type: Spontaneous
  Country: ES (occurrence: ES)
  Receive Date: 20250225
  Receipt Date: 20250225
  Transmission Date: 20250408
  Serious: Yes (Hospitalization, Other)
  Sender: HIKMA
  Company Number: ES-MLMSERVICE-20250205-PI396317-00101-1

PATIENT
  Age: 5 Month
  Sex: Female

DRUGS (3)
  1. CISPLATIN [Suspect]
     Active Substance: CISPLATIN
     Indication: Congenital retinoblastoma
     Dosage: 100 MILLIGRAM/SQ. METER, QD
     Route: 065
  2. ETOPOSIDE [Concomitant]
     Active Substance: ETOPOSIDE
     Indication: Congenital retinoblastoma
     Dosage: 100 MILLIGRAM/SQ. METER, QD
     Route: 065
  3. VINCRISTINE [Concomitant]
     Active Substance: VINCRISTINE
     Indication: Congenital retinoblastoma
     Dosage: 1.5 MILLIGRAM/SQ. METER, QD
     Route: 042

REACTIONS (1)
  - Drug hypersensitivity [Unknown]
